FAERS Safety Report 4816612-7 (Version None)
Quarter: 2005Q4

REPORT INFORMATION
  Report Type: 
  Country: None (occurrence: None)
  Receive Date: 20051028
  Receipt Date: 20051019
  Transmission Date: 20060501
  Serious: Yes (Other)
  Sender: FDA-Public Use
  Company Number: 2005145347

PATIENT
  Sex: Female
  Weight: 43.9082 kg

DRUGS (4)
  1. DILANTIN [Suspect]
     Indication: CONVULSION
     Dosage: 400 MG (200 MG, 2 IN 1 D)
     Dates: end: 20051019
  2. MEGACE [Suspect]
     Indication: ILL-DEFINED DISORDER
     Dates: end: 20051019
  3. NUTRITIONAL SUPPLEMENT (GENERAL NUTRIENTS) [Suspect]
     Indication: WEIGHT GAIN POOR
     Dates: end: 20051019
  4. AMIODARONE HCL [Concomitant]

REACTIONS (4)
  - BLOOD ALBUMIN DECREASED [None]
  - EOSINOPHIL PERCENTAGE INCREASED [None]
  - SYSTEMIC LUPUS ERYTHEMATOSUS [None]
  - WHITE BLOOD CELL COUNT INCREASED [None]
